FAERS Safety Report 8233306-9 (Version None)
Quarter: 2012Q1

REPORT INFORMATION
  Report Type: 
  Country: None (occurrence: None)
  Receive Date: 20120326
  Receipt Date: 20120320
  Transmission Date: 20120608
  Serious: Yes (Hospitalization)
  Sender: FDA-Public Use
  Company Number: US-BAYER-2012-028559

PATIENT
  Age: 26 Year
  Sex: Female
  Weight: 77.098 kg

DRUGS (7)
  1. HYDROCODONE BITARTRATE [Concomitant]
     Route: 048
  2. YASMIN [Suspect]
     Indication: CONTRACEPTION
     Dosage: UNK
     Dates: start: 20070101, end: 20090101
  3. YAZ [Suspect]
     Indication: CONTRACEPTION
     Dosage: UNK
     Dates: start: 20070101, end: 20090101
  4. CALCIUM CARBONATE [Concomitant]
     Dosage: UNK UNK, QD
     Route: 048
  5. TORADOL [Concomitant]
     Dosage: 30 MG, UNK
     Route: 042
  6. GAS-X [Concomitant]
     Route: 048
  7. ZOFRAN [Concomitant]
     Dosage: 4 MG, UNK
     Route: 042

REACTIONS (4)
  - CHOLELITHIASIS [None]
  - MENTAL DISORDER [None]
  - PANCREATITIS [None]
  - CHOLECYSTITIS CHRONIC [None]
